FAERS Safety Report 7183893-7 (Version None)
Quarter: 2010Q4

REPORT INFORMATION
  Report Type: 
  Country: None (occurrence: None)
  Receive Date: 20101210
  Receipt Date: 20101125
  Transmission Date: 20110411
  Serious: Yes (Hospitalization)
  Sender: FDA-Public Use
  Company Number: DSJ-2010-20941

PATIENT
  Age: 58 Year
  Sex: Female

DRUGS (2)
  1. AMLODIPINE BESYLATE AND OLMESARTAN MEDOXOMIL [Suspect]
     Indication: HYPERTENSION
     Dosage: 20/5 MG (1 IN 1 D),PER ORAL ; 20/5 MG (1 IN 1 D),PER ORAL
     Route: 048
     Dates: start: 20081101, end: 20100901
  2. AMLODIPINE BESYLATE AND OLMESARTAN MEDOXOMIL [Suspect]
     Indication: HYPERTENSION
     Dosage: 20/5 MG (1 IN 1 D),PER ORAL ; 20/5 MG (1 IN 1 D),PER ORAL
     Route: 048
     Dates: start: 20101001

REACTIONS (2)
  - APPENDICECTOMY [None]
  - GASTROINTESTINAL INFECTION [None]
